FAERS Safety Report 4431057-X (Version None)
Quarter: 2004Q3

REPORT INFORMATION
  Report Type: 
  Country: None (occurrence: None)
  Receive Date: 20040824
  Receipt Date: 20010921
  Transmission Date: 20050211
  Serious: Yes (Other)
  Sender: FDA-Public Use
  Company Number: 200121120GDDC

PATIENT
  Sex: Male

DRUGS (7)
  1. ARAVA [Suspect]
     Indication: RHEUMATOID ARTHRITIS
     Route: 048
     Dates: start: 20000707, end: 20011017
  2. PREDNISONE [Concomitant]
     Dates: end: 20010701
  3. ADALAT [Concomitant]
     Indication: HYPERTENSION
  4. THIAZIDES [Concomitant]
     Dosage: DOSE: UNK
  5. ATIVAN [Concomitant]
     Dosage: DOSE: UNK
  6. FLOMAX [Concomitant]
     Dosage: DOSE: UNK
  7. VIOXX [Concomitant]

REACTIONS (3)
  - ELECTROMYOGRAM ABNORMAL [None]
  - HYPOAESTHESIA [None]
  - NEUROPATHY PERIPHERAL [None]
